FAERS Safety Report 20339822 (Version 3)
Quarter: 2022Q1

REPORT INFORMATION
  Report Type: Spontaneous
  Country: JP (occurrence: JP)
  Receive Date: 20220117
  Receipt Date: 20220201
  Transmission Date: 20220424
  Serious: Yes (Other)
  Sender: FDA-Public Use
  Company Number: JP-MSD-2201JPN000940J

PATIENT
  Age: 79 Year
  Sex: Male

DRUGS (1)
  1. KEYTRUDA [Suspect]
     Active Substance: PEMBROLIZUMAB
     Indication: Lung adenocarcinoma stage III
     Dosage: UNK
     Route: 041

REACTIONS (1)
  - Immune-mediated hepatitis [Recovering/Resolving]
